FAERS Safety Report 24192838 (Version 1)
Quarter: 2024Q3

REPORT INFORMATION
  Report Type: Spontaneous
  Country: US (occurrence: US)
  Receive Date: 20240809
  Receipt Date: 20240809
  Transmission Date: 20241017
  Serious: Yes (Other)
  Sender: MIRUM PHARMACEUTICALS
  Company Number: US-TRAVERE-2023TVT00770

PATIENT
  Sex: Male

DRUGS (3)
  1. CHOLBAM [Suspect]
     Active Substance: CHOLIC ACID
     Indication: Cerebrohepatorenal syndrome
     Dosage: 250 MILLIGRAM, QD
     Route: 048
     Dates: start: 20230122
  2. CHOLBAM [Suspect]
     Active Substance: CHOLIC ACID
     Indication: Enzyme level abnormal
     Dosage: 50 MILLIGRAM, QD
     Route: 048
     Dates: start: 20230122
  3. CHOLBAM [Suspect]
     Active Substance: CHOLIC ACID
     Indication: Inborn error of metabolism

REACTIONS (2)
  - Deafness transitory [Recovered/Resolved]
  - Blindness transient [Recovered/Resolved]
